FAERS Safety Report 11645179 (Version 2)
Quarter: 2015Q4

REPORT INFORMATION
  Report Type: Spontaneous
  Country: US (occurrence: US)
  Receive Date: 20151020
  Receipt Date: 20151029
  Transmission Date: 20160304
  Serious: Yes (Death, Hospitalization)
  Sender: FDA-Public Use
  Company Number: US-UNITED THERAPEUTICS-UNT-2015-012624

PATIENT
  Age: 38 Year
  Sex: Female
  Weight: 155.56 kg

DRUGS (2)
  1. REVATIO [Concomitant]
     Active Substance: SILDENAFIL CITRATE
     Indication: PRODUCT USED FOR UNKNOWN INDICATION
  2. REMODULIN [Suspect]
     Active Substance: TREPROSTINIL
     Indication: PULMONARY HYPERTENSION
     Dosage: 0.0932 ?G/KG, CONTINUING
     Route: 058
     Dates: start: 20090828

REACTIONS (3)
  - Respiratory failure [Fatal]
  - Fluid retention [Unknown]
  - Renal failure [Unknown]

NARRATIVE: CASE EVENT DATE: 20151004
